FAERS Safety Report 26109709 (Version 1)
Quarter: 2025Q4

REPORT INFORMATION
  Report Type: Spontaneous
  Country: US (occurrence: None)
  Receive Date: 20251126
  Receipt Date: 20251126
  Transmission Date: 20260118
  Serious: Yes (Hospitalization)
  Sender: FDA-CTU
  Company Number: None

PATIENT
  Age: 74 Year
  Sex: Female

DRUGS (1)
  1. AMBRISENTAN [Suspect]
     Active Substance: AMBRISENTAN
     Indication: Pulmonary arterial hypertension
     Dosage: 10 MH FSILY ORSL ?
     Route: 048
     Dates: start: 20200101

REACTIONS (5)
  - Loss of consciousness [None]
  - Pulmonary embolism [None]
  - Road traffic accident [None]
  - Chest injury [None]
  - Somnolence [None]

NARRATIVE: CASE EVENT DATE: 20251124
